FAERS Safety Report 9896026 (Version 2)
Quarter: 2014Q1

REPORT INFORMATION
  Report Type: Spontaneous
  Country: US (occurrence: US)
  Receive Date: 20140213
  Receipt Date: 20140213
  Transmission Date: 20141002
  Serious: No
  Sender: FDA-Public Use
  Company Number: US-BRISTOL-MYERS SQUIBB COMPANY-18798496

PATIENT
  Age: 58 Year
  Sex: Female
  Weight: 86.17 kg

DRUGS (10)
  1. ABATACEPT SUBQ INJECTION 125MG/ML [Suspect]
     Indication: RHEUMATOID ARTHRITIS
     Dosage: 1DF= 125MG/ML
     Route: 058
     Dates: start: 201109
  2. PLAQUENIL [Concomitant]
     Dosage: TABS
  3. METHOTREXATE [Concomitant]
     Dosage: TABS
  4. PREDNISONE [Concomitant]
     Dosage: TABS
  5. LISINOPRIL [Concomitant]
     Dosage: TABS
  6. FOLIC ACID [Concomitant]
     Dosage: TABS
  7. VITAMIN D [Concomitant]
     Dosage: 1DF= 1000-UNITS?CAPS
  8. CALCIUM + VITAMIN D [Concomitant]
  9. MULTIVITAMIN [Concomitant]
     Dosage: TABS ESSENTIAL
  10. MAGNESIUM [Concomitant]
     Dosage: CAPS

REACTIONS (2)
  - Herpes zoster [Recovered/Resolved]
  - Skin disorder [Not Recovered/Not Resolved]
